FAERS Safety Report 10469153 (Version 1)
Quarter: 2014Q3

REPORT INFORMATION
  Report Type: Spontaneous
  Country: US (occurrence: None)
  Receive Date: 20140922
  Receipt Date: 20140922
  Transmission Date: 20150326
  Serious: Yes (Death)
  Sender: FDA-Public Use
  Company Number: None

PATIENT
  Age: 19 Year
  Sex: Female
  Weight: 50.8 kg

DRUGS (1)
  1. ZOLOFT [Suspect]
     Active Substance: SERTRALINE HYDROCHLORIDE
     Indication: AFFECTIVE DISORDER
     Dosage: 2 PILLS ONCE DAILY TAKEN BY MOUTH TWO DAYS AT MAX DOSE
     Route: 048

REACTIONS (23)
  - Akathisia [None]
  - Tremor [None]
  - Photophobia [None]
  - Serotonin syndrome [None]
  - Mydriasis [None]
  - Disturbance in attention [None]
  - Haemoptysis [None]
  - Face oedema [None]
  - Abnormal behaviour [None]
  - Anxiety [None]
  - Coordination abnormal [None]
  - Formication [None]
  - Hallucination [None]
  - Suicidal ideation [None]
  - Nightmare [None]
  - Insomnia [None]
  - Obsessive thoughts [None]
  - Completed suicide [None]
  - Depressive symptom [None]
  - Diarrhoea [None]
  - Paraesthesia [None]
  - Localised oedema [None]
  - Substance-induced psychotic disorder [None]

NARRATIVE: CASE EVENT DATE: 20130206
